FAERS Safety Report 6724798-2 (Version None)
Quarter: 2010Q2

REPORT INFORMATION
  Report Type: 
  Country: None (occurrence: None)
  Receive Date: 20100513
  Receipt Date: 20100513
  Transmission Date: 20101027
  Serious: Yes (Hospitalization)
  Sender: FDA-Public Use
  Company Number: None

PATIENT
  Age: 58 Year
  Sex: Female
  Weight: 83.0083 kg

DRUGS (2)
  1. ISOCAINE - NOVOCOL- 3 INJECTION SEPTODONT [Suspect]
     Indication: ANAESTHESIA
     Dosage: 0.85 ML X1 DENTAL
     Route: 004
     Dates: start: 20100430, end: 20100430
  2. ISOCAINE - NOVOCOL- 3 INJECTION SEPTODONT [Suspect]
     Indication: PREOPERATIVE CARE
     Dosage: 0.85 ML X1 DENTAL
     Route: 004
     Dates: start: 20100430, end: 20100430

REACTIONS (1)
  - LOSS OF CONSCIOUSNESS [None]
